FAERS Safety Report 23284602 (Version 2)
Quarter: 2025Q1

REPORT INFORMATION
  Report Type: Spontaneous
  Country: AT (occurrence: AT)
  Receive Date: 20231211
  Receipt Date: 20250127
  Transmission Date: 20250409
  Serious: Yes (Other)
  Sender: PFIZER
  Company Number: AT-009507513-2304AUT000376

PATIENT
  Age: 63 Year
  Sex: Female

DRUGS (3)
  1. CARBOPLATIN [Suspect]
     Active Substance: CARBOPLATIN
     Indication: Non-small cell lung cancer
     Dates: start: 202207
  2. PACLITAXEL [Suspect]
     Active Substance: PACLITAXEL
     Indication: Non-small cell lung cancer
     Dates: start: 202207
  3. PEMBROLIZUMAB [Suspect]
     Active Substance: PEMBROLIZUMAB
     Indication: Non-small cell lung cancer
     Dates: start: 202207

REACTIONS (13)
  - Polymyalgia rheumatica [Unknown]
  - Pneumonitis [Unknown]
  - Fatigue [Unknown]
  - Arthralgia [Unknown]
  - Blood prolactin decreased [Unknown]
  - Vision blurred [Unknown]
  - Blood corticotrophin decreased [Unknown]
  - Blood thyroid stimulating hormone decreased [Unknown]
  - Headache [Unknown]
  - Thyroxine free decreased [Unknown]
  - Hypophysitis [Unknown]
  - Myalgia [Unknown]
  - Cortisol decreased [Unknown]

NARRATIVE: CASE EVENT DATE: 20230101
